FAERS Safety Report 25109551 (Version 1)
Quarter: 2025Q1

REPORT INFORMATION
  Report Type: Spontaneous
  Country: GB (occurrence: GB)
  Receive Date: 20250323
  Receipt Date: 20250323
  Transmission Date: 20250409
  Serious: Yes (Other)
  Sender: AIRGAS
  Company Number: GB-MHRA-ULY-RHA-636133

PATIENT
  Age: 71 Year
  Sex: Male

DRUGS (1)
  1. OXYGEN [Suspect]
     Active Substance: OXYGEN
     Indication: Hypoxia
     Dates: start: 20250228

REACTIONS (2)
  - Hypoxia [Recovered/Resolved with Sequelae]
  - Agitation [Unknown]
